FAERS Safety Report 14207066 (Version 1)
Quarter: 2017Q4

REPORT INFORMATION
  Report Type: Spontaneous
  Country: US (occurrence: US)
  Receive Date: 20171121
  Receipt Date: 20171121
  Transmission Date: 20180321
  Serious: Yes (Other)
  Sender: FDA-Public Use
  Company Number: US-PURDUE-USA-2016-0131751

PATIENT
  Sex: Female

DRUGS (5)
  1. COLACE [Suspect]
     Active Substance: DOCUSATE SODIUM
     Dosage: 2 TABLET, DAILY
     Route: 048
     Dates: start: 20171107, end: 20171114
  2. COLACE [Suspect]
     Active Substance: DOCUSATE SODIUM
     Dosage: UNK UNK (1-2 100 MG CAPSULES), PRN
     Route: 048
  3. COLACE [Suspect]
     Active Substance: DOCUSATE SODIUM
     Indication: CONSTIPATION
     Dosage: 3 TABLET, EVERY OTHER DAY
     Route: 048
     Dates: start: 20171114
  4. COLACE [Suspect]
     Active Substance: DOCUSATE SODIUM
     Dosage: 100 MG, HS
     Route: 048
     Dates: end: 2016
  5. COLACE [Suspect]
     Active Substance: DOCUSATE SODIUM
     Dosage: (3) 100 MG, DAILY
     Route: 048
     Dates: start: 2016

REACTIONS (7)
  - Diarrhoea [Recovered/Resolved]
  - Flatulence [Unknown]
  - Drug effect decreased [Not Recovered/Not Resolved]
  - Constipation [Not Recovered/Not Resolved]
  - Faeces hard [Recovered/Resolved]
  - Haemorrhoids [Unknown]
  - Rectal haemorrhage [Recovered/Resolved]

NARRATIVE: CASE EVENT DATE: 20171112
